FAERS Safety Report 23469691 (Version 2)
Quarter: 2024Q1

REPORT INFORMATION
  Report Type: Spontaneous
  Country: CN (occurrence: CN)
  Receive Date: 20240202
  Receipt Date: 20240208
  Transmission Date: 20240410
  Serious: Yes (Other)
  Sender: FDA-Public Use
  Company Number: CN-GILEAD-2024-0660596

PATIENT
  Age: 67 Year
  Sex: Male
  Weight: 62 kg

DRUGS (1)
  1. BIKTARVY [Suspect]
     Active Substance: BICTEGRAVIR SODIUM\EMTRICITABINE\TENOFOVIR ALAFENAMIDE FUMARATE
     Indication: Acquired immunodeficiency syndrome
     Dosage: 275 MG, QD
     Route: 048
     Dates: start: 20240110, end: 20240111

REACTIONS (2)
  - Depressed level of consciousness [Recovering/Resolving]
  - Insomnia [Recovering/Resolving]

NARRATIVE: CASE EVENT DATE: 20240111
